FAERS Safety Report 5737315-0 (Version None)
Quarter: 2008Q2

REPORT INFORMATION
  Report Type: 
  Country: None (occurrence: None)
  Receive Date: 20080514
  Receipt Date: 20080507
  Transmission Date: 20081010
  Serious: Yes (Other)
  Sender: FDA-Public Use
  Company Number: US-ASTRAZENECA-2008UW09391

PATIENT
  Age: 66 Year
  Sex: Male
  Weight: 103 kg

DRUGS (6)
  1. CRESTOR [Suspect]
     Route: 048
     Dates: start: 20040101
  2. GEMFIBROZIL [Concomitant]
  3. SYNTHROID [Concomitant]
  4. CARDURA [Concomitant]
  5. FINASTERIDE [Concomitant]
  6. LUNESTA [Concomitant]

REACTIONS (4)
  - FATIGUE [None]
  - MUSCULAR WEAKNESS [None]
  - PNEUMONIA [None]
  - PYREXIA [None]
